FAERS Safety Report 5214465-9 (Version None)
Quarter: 2007Q1

REPORT INFORMATION
  Report Type: 
  Country: None (occurrence: None)
  Receive Date: 20070122
  Receipt Date: 20070111
  Transmission Date: 20070707
  Serious: Yes (Hospitalization)
  Sender: FDA-Public Use
  Company Number: PHNU2007DE00533

PATIENT
  Sex: Female

DRUGS (1)
  1. COMBIPATCH [Suspect]
     Indication: AMENORRHOEA
     Route: 048
     Dates: start: 20040401, end: 20040401

REACTIONS (2)
  - ABORTION [None]
  - VAGINAL HAEMORRHAGE [None]
